FAERS Safety Report 13399820 (Version 1)
Quarter: 2017Q1

REPORT INFORMATION
  Report Type: Spontaneous
  Country: UY (occurrence: US)
  Receive Date: 20170330
  Receipt Date: 20170330
  Transmission Date: 20170429
  Serious: Yes (Other)
  Sender: FDA-Public Use
  Company Number: None

PATIENT
  Age: 17 Year
  Sex: Male

DRUGS (2)
  1. MODAFINIL. [Concomitant]
     Active Substance: MODAFINIL
  2. SERTRALINE [Suspect]
     Active Substance: SERTRALINE HYDROCHLORIDE
     Dosage: ?          QUANTITY:1 CAPSULE(S);OTHER ROUTE:V?A ORAL?
     Route: 048

REACTIONS (4)
  - Depression [None]
  - Sexual dysfunction [None]
  - Drug ineffective [None]
  - Self esteem decreased [None]

NARRATIVE: CASE EVENT DATE: 20161027
